FAERS Safety Report 13651295 (Version 1)
Quarter: 2017Q2

REPORT INFORMATION
  Report Type: Spontaneous
  Country: FR (occurrence: FR)
  Receive Date: 20170614
  Receipt Date: 20170614
  Transmission Date: 20170830
  Serious: Yes (Congenital Anomaly)
  Sender: FDA-Public Use
  Company Number: FR-UCBSA-2017022706

PATIENT
  Age: 0 Year
  Sex: Female
  Weight: 3 kg

DRUGS (3)
  1. VIMPAT [Suspect]
     Active Substance: LACOSAMIDE
     Indication: EPILEPSY
     Dosage: 125 MG, ONCE DAILY (QD)
     Route: 064
     Dates: start: 20150126, end: 20151106
  2. TRILEPTAL [Suspect]
     Active Substance: OXCARBAZEPINE
     Indication: EPILEPSY
     Dosage: 2400 MG, ONCE DAILY (QD)
     Route: 064
     Dates: start: 20150126, end: 20151106
  3. FOLIC ACID. [Concomitant]
     Active Substance: FOLIC ACID
     Indication: PRODUCT USED FOR UNKNOWN INDICATION
     Dosage: 5 MG/DAY
     Route: 064
     Dates: end: 20151106

REACTIONS (4)
  - Congenital hypothyroidism [Recovering/Resolving]
  - Foetal exposure during pregnancy [Unknown]
  - Neonatal respiratory distress syndrome [Recovered/Resolved]
  - Hypotonia neonatal [Recovered/Resolved]

NARRATIVE: CASE EVENT DATE: 20150126
